FAERS Safety Report 20770681 (Version 1)
Quarter: 2022Q2

REPORT INFORMATION
  Report Type: Spontaneous
  Country: GB (occurrence: GB)
  Receive Date: 20220429
  Receipt Date: 20220429
  Transmission Date: 20220720
  Serious: Yes (Other)
  Sender: FDA-Public Use
  Company Number: GB-TEVA-2022-GB-2030950

PATIENT
  Sex: Female

DRUGS (3)
  1. DIAZEPAM [Suspect]
     Active Substance: DIAZEPAM
     Indication: Anxiety
     Dosage: 6 MILLIGRAM DAILY;
     Dates: start: 202201
  2. DIAZEPAM [Suspect]
     Active Substance: DIAZEPAM
     Indication: Affect lability
  3. DIAZEPAM [Suspect]
     Active Substance: DIAZEPAM
     Indication: Sleep disorder

REACTIONS (10)
  - Hallucination [Not Recovered/Not Resolved]
  - Drug abuse [Unknown]
  - Altered state of consciousness [Not Recovered/Not Resolved]
  - Aggression [Not Recovered/Not Resolved]
  - Feeling abnormal [Not Recovered/Not Resolved]
  - Insomnia [Not Recovered/Not Resolved]
  - Abnormal behaviour [Not Recovered/Not Resolved]
  - Slow speech [Not Recovered/Not Resolved]
  - Aphasia [Not Recovered/Not Resolved]
  - Fear [Not Recovered/Not Resolved]

NARRATIVE: CASE EVENT DATE: 20220101
